FAERS Safety Report 6098657-5 (Version None)
Quarter: 2009Q1

REPORT INFORMATION
  Report Type: 
  Country: None (occurrence: None)
  Receive Date: 20090302
  Receipt Date: 20090130
  Transmission Date: 20090719
  Serious: Yes (Death)
  Sender: FDA-Public Use
  Company Number: US-TYCO HEALTHCARE/MALLINCKRODT-T200900332

PATIENT
  Age: 39 Year
  Sex: Female

DRUGS (3)
  1. OXYCODONE [Suspect]
     Route: 065
  2. CITALOPRAM [Suspect]
     Route: 065
  3. TOPIRAMATE [Suspect]
     Route: 065

REACTIONS (1)
  - CARDIO-RESPIRATORY ARREST [None]
